FAERS Safety Report 4693746-1 (Version None)
Quarter: 2005Q2

REPORT INFORMATION
  Report Type: 
  Country: None (occurrence: None)
  Receive Date: 20050615
  Receipt Date: 20050602
  Transmission Date: 20051028
  Serious: Yes (Hospitalization)
  Sender: FDA-Public Use
  Company Number: 805#1#2005-00048

PATIENT
  Age: 72 Year
  Sex: Female

DRUGS (7)
  1. PROSTANDIN [Suspect]
     Indication: LUMBAR SPINAL STENOSIS
     Dosage: 1.80 MCG
     Route: 041
     Dates: start: 20050524, end: 20050530
  2. COCARBOXYLASE [Concomitant]
  3. ALMINOPROFEN [Concomitant]
  4. SODIUM AZULENE SULFONATE (AZULENE) [Concomitant]
  5. MENATETRENONE [Concomitant]
  6. DICLOFENAC SODIUM [Concomitant]
  7. EXTRACT FROM INFLAMMATORY RABBIT SKIN INOCULATED BY VACCINA VIRUS (ORG [Concomitant]

REACTIONS (2)
  - PLATELET COUNT DECREASED [None]
  - WHITE BLOOD CELL COUNT DECREASED [None]
